FAERS Safety Report 15734221 (Version 1)
Quarter: 2018Q4

REPORT INFORMATION
  Report Type: Spontaneous
  Country: US (occurrence: US)
  Receive Date: 20181203
  Receipt Date: 20181203
  Transmission Date: 20190205
  Serious: Yes (Other)
  Sender: FDA-Public Use
  Company Number: None

PATIENT
  Age: 72 Year
  Sex: Male
  Weight: 74.25 kg

DRUGS (18)
  1. CIPRO [Concomitant]
     Active Substance: CIPROFLOXACIN HYDROCHLORIDE
  2. PROSCAR [Concomitant]
     Active Substance: FINASTERIDE
  3. BACLOFEN. [Concomitant]
     Active Substance: BACLOFEN
  4. DECADRON [Concomitant]
     Active Substance: DEXAMETHASONE
  5. TAMSULOSIN [Concomitant]
     Active Substance: TAMSULOSIN
  6. NOXAFIL [Suspect]
     Active Substance: POSACONAZOLE
     Indication: ACUTE MYELOID LEUKAEMIA
     Route: 048
     Dates: start: 20181106
  7. ACYCLOVIR. [Concomitant]
     Active Substance: ACYCLOVIR
  8. MIRALAX [Concomitant]
     Active Substance: POLYETHYLENE GLYCOL 3350
  9. MULTIVITAMINS ADULTS [Concomitant]
  10. ALLOPURINOL. [Concomitant]
     Active Substance: ALLOPURINOL
  11. REMERON [Concomitant]
     Active Substance: MIRTAZAPINE
  12. SYNTHROID [Concomitant]
     Active Substance: LEVOTHYROXINE SODIUM
  13. LEVAQUIN [Concomitant]
     Active Substance: LEVOFLOXACIN
  14. ASA [Concomitant]
     Active Substance: ASPIRIN
  15. MELATONIN [Concomitant]
     Active Substance: MELATONIN
  16. PRAVASTATIN. [Concomitant]
     Active Substance: PRAVASTATIN
  17. VENCLEXTA [Concomitant]
     Active Substance: VENETOCLAX
  18. SENNA LAXATIVE [Concomitant]
     Active Substance: SENNOSIDES

REACTIONS (2)
  - Myalgia [None]
  - Skin burning sensation [None]

NARRATIVE: CASE EVENT DATE: 20181203
